FAERS Safety Report 4981730-X (Version None)
Quarter: 2006Q2

REPORT INFORMATION
  Report Type: 
  Country: None (occurrence: None)
  Receive Date: 20060420
  Receipt Date: 20060420
  Transmission Date: 20061013
  Serious: Yes (Hospitalization)
  Sender: FDA-Public Use
  Company Number: None

PATIENT
  Sex: Female
  Weight: 78 kg

DRUGS (3)
  1. NAFCILLIN SODIUM [Suspect]
     Indication: CELLULITIS
     Dosage: 2G IV X1
     Route: 042
     Dates: start: 20060211
  2. NADOLOL [Concomitant]
  3. BCP [Concomitant]

REACTIONS (1)
  - BLOOD PRESSURE DECREASED [None]
